FAERS Safety Report 7939377 (Version 16)
Quarter: 2013Q4

REPORT INFORMATION
  Report Type: Spontaneous
  Country: FR (occurrence: FR)
  Receive Date: 20110511
  Receipt Date: 20131101
  Transmission Date: 20140711
  Serious: Yes (Hospitalization, Other)
  Sender: FDA-Public Use
  Company Number: FR-BIOGENIDEC-2011BI016354

PATIENT
  Age: 42 Year
  Sex: Female

DRUGS (6)
  1. TYSABRI [Suspect]
     Indication: MULTIPLE SCLEROSIS
     Route: 042
     Dates: start: 2007, end: 20110415
  2. LYRICA [Concomitant]
  3. ANAFRANIL [Concomitant]
  4. TARDYFERON [Concomitant]
  5. RIVOTRIL [Concomitant]
  6. MANTADIX [Concomitant]

REACTIONS (5)
  - Progressive multifocal leukoencephalopathy [Not Recovered/Not Resolved]
  - Immune reconstitution inflammatory syndrome [Unknown]
  - Staphylococcal sepsis [Recovered/Resolved]
  - Thrombosis [Recovered/Resolved]
  - Epilepsy [Recovered/Resolved]
